FAERS Safety Report 25448624 (Version 1)
Quarter: 2025Q2

REPORT INFORMATION
  Report Type: Report from Study
  Country: GB (occurrence: GB)
  Receive Date: 20250618
  Receipt Date: 20250618
  Transmission Date: 20250717
  Serious: Yes (Other)
  Sender: JOHNSON AND JOHNSON
  Company Number: GB-JNJFOC-20250616026

PATIENT
  Age: 48 Year
  Sex: Female

DRUGS (1)
  1. SIMPONI [Suspect]
     Active Substance: GOLIMUMAB
     Indication: Ankylosing spondylitis
     Dosage: EVERY 4 WEEKS
     Route: 058

REACTIONS (3)
  - Lower respiratory tract infection [Unknown]
  - Diarrhoea [Unknown]
  - Illness [Unknown]

NARRATIVE: CASE EVENT DATE: 20250101
